FAERS Safety Report 9206568 (Version 3)
Quarter: 2013Q3

REPORT INFORMATION
  Report Type: Spontaneous
  Country: IT (occurrence: IT)
  Receive Date: 20130403
  Receipt Date: 20130731
  Transmission Date: 20140515
  Serious: Yes (Other)
  Sender: FDA-Public Use
  Company Number: IT-PFIZER INC-2013105042

PATIENT
  Age: 34 Year
  Sex: Female

DRUGS (8)
  1. LYRICA [Suspect]
     Dosage: UNK
     Route: 048
     Dates: start: 20130303, end: 20130303
  2. PRAZENE [Suspect]
     Dosage: 40 MG (UNSPECIFIED DOSE)
     Route: 048
     Dates: start: 20130303, end: 20130303
  3. INDERAL [Suspect]
     Dosage: 40 MG (UNSPECIFIED DOSE)
     Route: 048
     Dates: start: 20130303, end: 20130303
  4. PROZAC [Suspect]
     Dosage: 40 MG (UNSPECIFIED DOSE)
     Route: 048
     Dates: start: 20130303, end: 20130303
  5. LAMICTAL [Suspect]
     Dosage: 25 MG (UNSPECIFIED DOSE)
     Route: 048
     Dates: start: 20130303, end: 20130303
  6. VALDOXAN [Suspect]
     Dosage: 25 MG (UNSPECIFIED DOSE)
     Route: 048
     Dates: start: 20130303, end: 20130303
  7. STILNOX [Suspect]
     Dosage: UNK
     Route: 048
     Dates: start: 20130303, end: 20130303
  8. TOPAMAX [Suspect]
     Dosage: 100 MG, UNK
     Route: 048
     Dates: start: 20130303, end: 20130303

REACTIONS (3)
  - Toxicity to various agents [Recovering/Resolving]
  - Slow speech [Recovering/Resolving]
  - Drug abuse [Unknown]
